FAERS Safety Report 19745337 (Version 1)
Quarter: 2021Q3

REPORT INFORMATION
  Report Type: Spontaneous
  Country: FR (occurrence: FR)
  Receive Date: 20210825
  Receipt Date: 20210825
  Transmission Date: 20211014
  Serious: Yes (Other)
  Sender: FDA-Public Use
  Company Number: FR-MYLANLABS-2021M1054713

PATIENT
  Age: 55 Year
  Sex: Male
  Weight: 62 kg

DRUGS (8)
  1. PIPERACILLIN/TAZOBACTAM [Suspect]
     Active Substance: PIPERACILLIN SODIUM\TAZOBACTAM SODIUM
     Indication: PRODUCT USED FOR UNKNOWN INDICATION
     Dosage: 4 GRAM, Q6H
     Route: 042
     Dates: start: 20210427, end: 20210504
  2. AMBISOME [Suspect]
     Active Substance: AMPHOTERICIN B
     Indication: MUCORMYCOSIS
     Dosage: 10MG/KG THEN DECREASE TO 550 MG DUE TO POOR
     Route: 042
     Dates: start: 20210427, end: 20210514
  3. LANSOPRAZOLE. [Suspect]
     Active Substance: LANSOPRAZOLE
     Indication: PRODUCT USED FOR UNKNOWN INDICATION
     Dosage: 30 MILLIGRAM, QD
     Route: 048
     Dates: start: 20210419
  4. LOVENOX HP [Suspect]
     Active Substance: ENOXAPARIN SODIUM
     Indication: THROMBOSIS PROPHYLAXIS
     Dosage: 4000 INTERNATIONAL UNIT, QD
     Route: 058
     Dates: start: 20210428
  5. CEFAZOLIN [Suspect]
     Active Substance: CEFAZOLIN
     Indication: SINUSITIS
     Dosage: ACCORDING TO RENAL FUNCTION 1 G
     Route: 030
     Dates: start: 20210513
  6. DAPTOMYCINE [Suspect]
     Active Substance: DAPTOMYCIN
     Indication: SINUSITIS
     Dosage: 500 MILLIGRAM, QD
     Route: 042
     Dates: start: 20210413, end: 20210416
  7. LAROXYL [Suspect]
     Active Substance: AMITRIPTYLINE HYDROCHLORIDE
     Indication: PRODUCT USED FOR UNKNOWN INDICATION
     Dosage: FROM 15 TO 30
     Route: 048
     Dates: start: 20210429, end: 20210506
  8. POSACONAZOLE [Suspect]
     Active Substance: POSACONAZOLE
     Indication: MUCORMYCOSIS
     Dosage: LOADING DOSE 100 MG 2 THEN
     Route: 048
     Dates: start: 20210515, end: 20210519

REACTIONS (1)
  - Cholestasis [Recovering/Resolving]

NARRATIVE: CASE EVENT DATE: 20210519
